FAERS Safety Report 22351169 (Version 1)
Quarter: 2023Q2

REPORT INFORMATION
  Report Type: Spontaneous
  Country: US (occurrence: US)
  Receive Date: 20230522
  Receipt Date: 20230522
  Transmission Date: 20230721
  Serious: No
  Sender: FDA-Public Use
  Company Number: US-Stemline Therapeutics, Inc.-2023ST000197

PATIENT
  Age: 75 Year
  Sex: Female

DRUGS (40)
  1. ORSERDU [Suspect]
     Active Substance: ELACESTRANT
     Indication: Product used for unknown indication
     Route: 048
     Dates: start: 202302, end: 202303
  2. VITALZYN [Concomitant]
     Indication: Product used for unknown indication
     Route: 065
  3. 5-HTP [Concomitant]
     Indication: Product used for unknown indication
     Route: 065
  4. Adaptocrine [Concomitant]
     Indication: Product used for unknown indication
     Route: 065
  5. AMINO ACIDS, SOURCE UNSPECIFIED [Concomitant]
     Active Substance: AMINO ACIDS, SOURCE UNSPECIFIED
     Indication: Product used for unknown indication
     Route: 065
  6. Astragalus Root  Powder [Concomitant]
     Indication: Product used for unknown indication
     Route: 065
  7. Boswellia Serrata Extract  Powder [Concomitant]
     Indication: Product used for unknown indication
     Route: 065
  8. Calcium Hydroxyapatite Powder [Concomitant]
     Indication: Product used for unknown indication
     Route: 065
  9. Methylcobalamin Injection Solution [Concomitant]
     Indication: Product used for unknown indication
     Route: 065
  10. Digest Gold [Concomitant]
     Indication: Product used for unknown indication
     Route: 065
  11. ECHINACEA [Concomitant]
     Active Substance: ECHINACEA, UNSPECIFIED
     Indication: Product used for unknown indication
     Route: 065
  12. HERBALS [Concomitant]
     Active Substance: HERBALS
     Indication: Product used for unknown indication
     Route: 065
  13. FISH OIL [Concomitant]
     Active Substance: FISH OIL
     Indication: Product used for unknown indication
     Route: 065
  14. GLYCINE [Concomitant]
     Active Substance: GLYCINE
     Indication: Product used for unknown indication
     Route: 065
  15. HYALURONIC ACID [Concomitant]
     Active Substance: HYALURONIC ACID
     Indication: Product used for unknown indication
     Route: 065
  16. IBUPROFEN [Concomitant]
     Active Substance: IBUPROFEN
     Indication: Product used for unknown indication
     Route: 065
  17. L-Glutamine Crystals [Concomitant]
     Indication: Product used for unknown indication
     Route: 065
  18. Licorice Flavor Liquid [Concomitant]
     Indication: Product used for unknown indication
     Route: 065
  19. LIOTHYRONINE SODIUM [Concomitant]
     Active Substance: LIOTHYRONINE SODIUM
     Indication: Product used for unknown indication
     Route: 065
  20. LONGVIDA [Concomitant]
     Indication: Product used for unknown indication
     Route: 065
  21. MAGNESIUM OXIDE [Concomitant]
     Active Substance: MAGNESIUM OXIDE
     Indication: Product used for unknown indication
     Route: 065
  22. MELATONIN [Concomitant]
     Active Substance: MELATONIN
     Indication: Product used for unknown indication
     Route: 065
  23. ONDANSETRON [Concomitant]
     Active Substance: ONDANSETRON
     Indication: Product used for unknown indication
     Route: 065
  24. Opti-zinc [Concomitant]
     Indication: Product used for unknown indication
     Route: 065
  25. MENAQUINONE 6 [Concomitant]
     Active Substance: MENAQUINONE 6
     Indication: Product used for unknown indication
     Route: 065
  26. Pancreatin + Ox Bile Extract [Concomitant]
     Indication: Product used for unknown indication
     Route: 065
  27. SYNTHROID [Concomitant]
     Active Substance: LEVOTHYROXINE SODIUM
     Indication: Product used for unknown indication
     Route: 065
  28. VITAMIN C [Concomitant]
     Active Substance: ASCORBIC ACID
     Indication: Product used for unknown indication
     Route: 065
  29. POTASSIUM GLUCONATE [Concomitant]
     Active Substance: POTASSIUM GLUCONATE
     Indication: Product used for unknown indication
     Route: 065
  30. VITAMIN D2 [Concomitant]
     Active Substance: ERGOCALCIFEROL
     Indication: Product used for unknown indication
     Route: 065
  31. VITAMIN D3 [Concomitant]
     Active Substance: CHOLECALCIFEROL
     Indication: Product used for unknown indication
     Route: 065
  32. ONDANSETRON [Concomitant]
     Active Substance: ONDANSETRON
     Indication: Product used for unknown indication
     Route: 065
  33. MSM Oral Powder [Concomitant]
     Indication: Product used for unknown indication
     Route: 065
  34. Mushroom Complex, Zyflamend [Concomitant]
     Indication: Product used for unknown indication
  35. Ther-Biotic Detox Support [Concomitant]
     Indication: Product used for unknown indication
     Route: 065
  36. POTASSIUM CHLORIDE [Concomitant]
     Active Substance: POTASSIUM CHLORIDE
     Indication: Product used for unknown indication
     Route: 065
  37. PQQ [Concomitant]
     Indication: Product used for unknown indication
     Route: 065
  38. UBIQUINOL [Concomitant]
     Active Substance: UBIQUINOL
     Indication: Product used for unknown indication
     Route: 065
  39. TRIMETHYLGLYCINE [Concomitant]
     Indication: Product used for unknown indication
     Route: 065
  40. Turkey tail mushrooms [Concomitant]
     Indication: Product used for unknown indication
     Route: 065

REACTIONS (5)
  - Dysphagia [Not Recovered/Not Resolved]
  - Hospice care [Not Recovered/Not Resolved]
  - Dyspnoea [Not Recovered/Not Resolved]
  - Constipation [Not Recovered/Not Resolved]
  - Gastrooesophageal reflux disease [Unknown]
